FAERS Safety Report 18198740 (Version 1)
Quarter: 2020Q3

REPORT INFORMATION
  Report Type: Spontaneous
  Country: AU (occurrence: AU)
  Receive Date: 20200826
  Receipt Date: 20200826
  Transmission Date: 20201103
  Serious: Yes (Hospitalization)
  Sender: FDA-Public Use
  Company Number: AU-MYLANLABS-2020M1074344

PATIENT
  Age: 38 Year
  Sex: Female

DRUGS (3)
  1. FENUGREEK                          /01475701/ [Interacting]
     Active Substance: HERBALS
     Indication: LACTATION STIMULATION THERAPY
     Dosage: UNK
     Route: 048
  2. SERTRALINE [Interacting]
     Active Substance: SERTRALINE HYDROCHLORIDE
     Indication: ANXIETY
     Dosage: 50 MILLIGRAM, QDRECEIVED SINGLE DOSE ON DAY 2
     Route: 065
  3. SERTRALINE [Suspect]
     Active Substance: SERTRALINE HYDROCHLORIDE
     Indication: DEPRESSION
     Dosage: 25 MILLIGRAM, QD RECEIVED SINGLE DOSE ON DAY 1
     Route: 065

REACTIONS (3)
  - Drug interaction [Recovered/Resolved]
  - Maternal exposure during breast feeding [Unknown]
  - Serotonin syndrome [Recovered/Resolved]
